FAERS Safety Report 12314651 (Version 1)
Quarter: 2016Q2

REPORT INFORMATION
  Report Type: Spontaneous
  Country: BR (occurrence: BR)
  Receive Date: 20160428
  Receipt Date: 20160428
  Transmission Date: 20160815
  Serious: Yes (Death, Hospitalization)
  Sender: FDA-Public Use
  Company Number: BR-PFIZER INC-2015289889

PATIENT
  Age: 57 Year
  Sex: Female
  Weight: 73 kg

DRUGS (2)
  1. SUTENT [Suspect]
     Active Substance: SUNITINIB MALATE
     Indication: METASTATIC RENAL CELL CARCINOMA
     Dosage: 50 MG, CYCLIC (4X2)
     Route: 048
     Dates: start: 20150828, end: 20160218
  2. SUTENT [Suspect]
     Active Substance: SUNITINIB MALATE
     Dosage: 30 MG, UNK

REACTIONS (7)
  - Vomiting [Recovered/Resolved]
  - Blood disorder [Not Recovered/Not Resolved]
  - Pain [Unknown]
  - Nausea [Recovered/Resolved]
  - Dizziness [Recovered/Resolved]
  - Disease progression [Fatal]
  - Metastatic renal cell carcinoma [Fatal]

NARRATIVE: CASE EVENT DATE: 20150828
